FAERS Safety Report 18758653 (Version 2)
Quarter: 2021Q1

REPORT INFORMATION
  Report Type: Spontaneous
  Country: US (occurrence: US)
  Receive Date: 20210119
  Receipt Date: 20210201
  Transmission Date: 20210419
  Serious: Yes (Other)
  Sender: FDA-Public Use
  Company Number: US-TEVA-2021-US-1869091

PATIENT
  Sex: Female

DRUGS (1)
  1. NEFAZODONE HYDROCHLORIDE TEVA [Suspect]
     Active Substance: NEFAZODONE HYDROCHLORIDE
     Dosage: TAKING THIS MEDICATION FOR 23 YEARS
     Route: 065

REACTIONS (4)
  - Drug dependence [Unknown]
  - Impaired work ability [Unknown]
  - Illness [Unknown]
  - Product supply issue [Unknown]
